FAERS Safety Report 4362601-9 (Version None)
Quarter: 2004Q2

REPORT INFORMATION
  Report Type: 
  Country: None (occurrence: None)
  Receive Date: 20040521
  Receipt Date: 20031016
  Transmission Date: 20050107
  Serious: Yes (Hospitalization, Other)
  Sender: FDA-Public Use
  Company Number: US-MERCK-0310USA01951

PATIENT
  Age: 62 Year
  Sex: Male
  Weight: 80 kg

DRUGS (7)
  1. RESPAIRE [Concomitant]
     Route: 065
  2. FLONASE [Concomitant]
     Route: 065
  3. MINOCYCLINE [Concomitant]
     Route: 065
  4. PIROXICAM [Concomitant]
     Route: 065
     Dates: end: 20000718
  5. PREDNISONE [Concomitant]
     Route: 065
  6. ZANTAC [Concomitant]
     Route: 065
  7. VIOXX [Suspect]
     Indication: RHEUMATOID ARTHRITIS
     Route: 048
     Dates: start: 20000718, end: 20010914

REACTIONS (17)
  - BASAL CELL CARCINOMA [None]
  - CORONARY ARTERY DISEASE [None]
  - DIABETES MELLITUS INSULIN-DEPENDENT [None]
  - DIASTOLIC DYSFUNCTION [None]
  - FLUID OVERLOAD [None]
  - HYPERLIPIDAEMIA [None]
  - HYPERTENSION [None]
  - HYPOXIA [None]
  - MYOCARDIAL INFARCTION [None]
  - PAIN [None]
  - PULMONARY OEDEMA [None]
  - ROTATOR CUFF SYNDROME [None]
  - SEBORRHOEIC KERATOSIS [None]
  - SKIN NECROSIS [None]
  - SKIN ULCER [None]
  - SYNCOPE [None]
  - TRICUSPID VALVE INCOMPETENCE [None]
